FAERS Safety Report 20457825 (Version 1)
Quarter: 2022Q1

REPORT INFORMATION
  Report Type: Spontaneous
  Country: US (occurrence: US)
  Receive Date: 20220210
  Receipt Date: 20220210
  Transmission Date: 20220423
  Serious: Yes (Hospitalization, Other)
  Sender: FDA-Public Use
  Company Number: US-TEVA-2022-US-2005318

PATIENT
  Age: 43 Year
  Sex: Female

DRUGS (1)
  1. METAXALONE [Suspect]
     Active Substance: METAXALONE
     Dosage: 1600 MILLIGRAM DAILY;
     Route: 048
     Dates: start: 20211108, end: 20220126

REACTIONS (6)
  - Abdominal pain [Not Recovered/Not Resolved]
  - Near death experience [Unknown]
  - Nausea [Unknown]
  - Vomiting projectile [Unknown]
  - Discomfort [Not Recovered/Not Resolved]
  - Product quality issue [Unknown]

NARRATIVE: CASE EVENT DATE: 20211101
